FAERS Safety Report 5086816-X (Version None)
Quarter: 2006Q3

REPORT INFORMATION
  Report Type: 
  Country: None (occurrence: None)
  Receive Date: 20060823
  Receipt Date: 20060814
  Transmission Date: 20061208
  Serious: Yes (Hospitalization)
  Sender: FDA-Public Use
  Company Number: PHBS2006NL12165

PATIENT
  Age: 55 Year
  Sex: Male

DRUGS (3)
  1. LEPONEX [Suspect]
     Indication: PSYCHOTIC DISORDER
     Dosage: 6.25 MG
     Route: 048
     Dates: start: 19970101, end: 20060327
  2. LACTULOSE [Concomitant]
     Dosage: 45 ML
     Route: 065
  3. NITRAZEPAM [Concomitant]
     Dosage: 1 DF, PRN
     Route: 065

REACTIONS (4)
  - ANAEMIA [None]
  - LEUKOPENIA [None]
  - PANCYTOPENIA [None]
  - THROMBOCYTOPENIA [None]
